FAERS Safety Report 11411930 (Version 2)
Quarter: 2015Q3

REPORT INFORMATION
  Report Type: Spontaneous
  Country: US (occurrence: US)
  Receive Date: 20150821
  Receipt Date: 20150903
  Transmission Date: 20151125
  Serious: No
  Sender: FDA-Public Use
  Company Number: US-ELI_LILLY_AND_COMPANY-US201110002471

PATIENT
  Age: 5 Year
  Sex: Female

DRUGS (3)
  1. HUMALOG [Suspect]
     Active Substance: INSULIN LISPRO
     Indication: TYPE 1 DIABETES MELLITUS
     Dosage: 2.5 U, BID
     Dates: start: 201106
  2. HUMULIN N [Suspect]
     Active Substance: INSULIN HUMAN
     Indication: TYPE 1 DIABETES MELLITUS
     Dosage: 5 U, EACH MORNING
     Dates: start: 201106
  3. HUMULIN N [Suspect]
     Active Substance: INSULIN HUMAN
     Dosage: 2.5 U, EACH EVENING
     Dates: start: 201106

REACTIONS (2)
  - Blood glucose fluctuation [Unknown]
  - Incorrect dose administered [Unknown]
